FAERS Safety Report 13103737 (Version 1)
Quarter: 2017Q1

REPORT INFORMATION
  Report Type: Spontaneous
  Country: US (occurrence: US)
  Receive Date: 20170111
  Receipt Date: 20170111
  Transmission Date: 20170428
  Serious: Yes (Hospitalization)
  Sender: FDA-Public Use
  Company Number: US-BAUSCH-BL-2016-032628

PATIENT
  Age: 81 Year
  Sex: Female
  Weight: 52.66 kg

DRUGS (2)
  1. LATANOPROST OPHTHALMIC SOLUTION 0.005% [Suspect]
     Active Substance: LATANOPROST
     Indication: GLAUCOMA
     Dosage: ONE DROP IN EACH EYE AT BEDTIME
     Route: 047
     Dates: start: 201605
  2. LATANOPROST OPHTHALMIC SOLUTION 0.005% [Suspect]
     Active Substance: LATANOPROST
     Dosage: ONE DROP IN EACH EYE AT BEDTIME
     Route: 047
     Dates: start: 20161226

REACTIONS (6)
  - Eye disorder [Unknown]
  - Conjunctivitis [Unknown]
  - Heart rate irregular [Unknown]
  - Eye irritation [Unknown]
  - Drug administration error [Unknown]
  - Pneumonia [Unknown]
